FAERS Safety Report 5052760-7 (Version None)
Quarter: 2006Q3

REPORT INFORMATION
  Report Type: 
  Country: None (occurrence: None)
  Receive Date: 20060717
  Receipt Date: 20060410
  Transmission Date: 20061208
  Serious: Yes (Life-Threatening)
  Sender: FDA-Public Use
  Company Number: US-ROCHE-444043

PATIENT
  Age: 68 Year
  Sex: Male

DRUGS (2)
  1. XELODA [Suspect]
     Route: 048
     Dates: start: 20060406, end: 20060409
  2. XELODA [Suspect]
     Dosage: REINTRODUCED.
     Route: 048

REACTIONS (2)
  - CONVULSION [None]
  - GRAND MAL CONVULSION [None]
